FAERS Safety Report 11053539 (Version 2)
Quarter: 2015Q2

REPORT INFORMATION
  Report Type: Spontaneous
  Country: US (occurrence: US)
  Receive Date: 20150421
  Receipt Date: 20150526
  Transmission Date: 20150821
  Serious: No
  Sender: FDA-Public Use
  Company Number: US-JNJFOC-20150312563

PATIENT
  Sex: Male

DRUGS (1)
  1. RISPERDAL [Suspect]
     Active Substance: RISPERIDONE
     Indication: SCHIZOPHRENIA
     Route: 048

REACTIONS (4)
  - Insomnia [Not Recovered/Not Resolved]
  - Adverse event [Unknown]
  - Increased appetite [Not Recovered/Not Resolved]
  - Weight increased [Not Recovered/Not Resolved]
